FAERS Safety Report 5803895-X (Version None)
Quarter: 2008Q3

REPORT INFORMATION
  Report Type: 
  Country: None (occurrence: None)
  Receive Date: 20080708
  Receipt Date: 20080626
  Transmission Date: 20090109
  Serious: Yes (Hospitalization, Other)
  Sender: FDA-Public Use
  Company Number: JP-PFIZER INC-2008047229

PATIENT
  Age: 28 Year
  Sex: Male

DRUGS (5)
  1. ZOLOFT [Suspect]
     Dosage: DAILY DOSE:75MG
     Route: 048
  2. ZYPREXA [Suspect]
     Indication: SOMATISATION DISORDER
     Dosage: DAILY DOSE:2.5MG
  3. WYPAX [Suspect]
     Indication: ANXIETY
  4. LENDORMIN [Suspect]
  5. TOFRANIL [Concomitant]
     Route: 048

REACTIONS (5)
  - ADJUSTMENT DISORDER [None]
  - DEPRESSION [None]
  - SUICIDE ATTEMPT [None]
  - TACHYCARDIA [None]
  - TREMOR [None]
